FAERS Safety Report 9274795 (Version 1)
Quarter: 2013Q2

REPORT INFORMATION
  Report Type: Spontaneous
  Country: US (occurrence: None)
  Receive Date: 20130501
  Receipt Date: 20130501
  Transmission Date: 20140414
  Serious: Yes (Other)
  Sender: FDA-Public Use
  Company Number: None

PATIENT
  Age: 52 Year
  Sex: Male
  Weight: 88.45 kg

DRUGS (1)
  1. CREON [Suspect]
     Dosage: 1 CAPSULE 15X/ DAY
     Route: 048
     Dates: start: 20130130, end: 20130430

REACTIONS (9)
  - Vomiting projectile [None]
  - Nausea [None]
  - Dehydration [None]
  - Somnolence [None]
  - Abnormal dreams [None]
  - Product taste abnormal [None]
  - Product odour abnormal [None]
  - Product quality issue [None]
  - Diarrhoea [None]
